FAERS Safety Report 15285353 (Version 9)
Quarter: 2019Q2

REPORT INFORMATION
  Report Type: Spontaneous
  Country: CA (occurrence: CA)
  Receive Date: 20180816
  Receipt Date: 20190619
  Transmission Date: 20190711
  Serious: Yes (Hospitalization, Other)
  Sender: FDA-Public Use
  Company Number: CA-CELLTRION INC.-2018CA021824

PATIENT

DRUGS (17)
  1. INFLECTRA [Suspect]
     Active Substance: INFLIXIMAB-DYYB
     Dosage: 300 MG, EVERY 2,6, AND EVERY 8 WEEKS
     Route: 042
     Dates: start: 20180823
  2. INFLECTRA [Suspect]
     Active Substance: INFLIXIMAB-DYYB
     Dosage: 300 MG,(EVERY 2,6, AND EVERY 8 WEEKS)
     Route: 042
     Dates: start: 20190403
  3. INFLECTRA [Suspect]
     Active Substance: INFLIXIMAB-DYYB
     Dosage: 300 MG, EVERY 2,6, AND EVERY 8 WEEKS
     Route: 042
     Dates: start: 20180727
  4. CORTISONE [Concomitant]
     Active Substance: CORTISONE\HYDROCORTISONE
     Dosage: UNK
     Route: 042
     Dates: start: 20180626
  5. INFLECTRA [Suspect]
     Active Substance: INFLIXIMAB-DYYB
     Indication: COLITIS ULCERATIVE
     Dosage: 5 MG/KG, EVERY 0, 2, 6 WEEKS THEN EVERY 8 WEEKS
     Route: 042
     Dates: start: 20180710
  6. SALOFALK [MESALAZINE] [Concomitant]
     Active Substance: MESALAMINE
     Indication: ENEMA ADMINISTRATION
     Dosage: UNK, 1X/DAY (OVERNIGHT FOR 3 MONTHS)
     Route: 054
     Dates: start: 201808
  7. INFLECTRA [Suspect]
     Active Substance: INFLIXIMAB-DYYB
     Dosage: 300 MG, (EVERY2,6, AND EVERY 8 WEEKS)
     Route: 042
     Dates: start: 20180710
  8. INFLECTRA [Suspect]
     Active Substance: INFLIXIMAB-DYYB
     Dosage: 300 MG, EVERY 2,6, AND EVERY 8 WEEKS
     Route: 042
     Dates: start: 20181018
  9. ASACOL [Concomitant]
     Active Substance: MESALAMINE
     Dosage: 8 TABLETS FOR 7 DAYS, THEN 7 TABLETS FOR 7 DAYS ETC. (TAPERING DOSE),
     Route: 048
     Dates: start: 201808
  10. SALOFALK  [MESALAZINE] [Concomitant]
     Active Substance: MESALAMINE
     Indication: ENEMA ADMINISTRATION
     Dosage: UNK, 1X/DAY (OVERNIGHT FOR 3 MONTHS)
     Route: 054
     Dates: start: 201808
  11. VITAMIN B12 [Concomitant]
     Active Substance: CYANOCOBALAMIN
     Dosage: UNK, EVERY TUESDAYS
     Dates: start: 201807
  12. INFLECTRA [Suspect]
     Active Substance: INFLIXIMAB-DYYB
     Dosage: 300 MG, EVERY 2,6, AND EVERY 8 WEEKS
     Route: 042
  13. INFLECTRA [Suspect]
     Active Substance: INFLIXIMAB-DYYB
     Dosage: 300 MG,(EVERY 2,6, AND EVERY 8 WEEKS)
     Route: 042
     Dates: start: 20190529
  14. PREDNISONE. [Concomitant]
     Active Substance: PREDNISONE
     Dosage: UNK
     Dates: start: 201709
  15. INFLECTRA [Suspect]
     Active Substance: INFLIXIMAB-DYYB
     Dosage: 300 MG, EVERY 2,6, AND EVERY 8 WEEKS
     Route: 042
     Dates: start: 20181212
  16. INFLECTRA [Suspect]
     Active Substance: INFLIXIMAB-DYYB
     Dosage: 300 MG, EVERY 2,6, AND EVERY 8 WEEKS
     Route: 042
     Dates: start: 20190206
  17. CORTISONE [Concomitant]
     Active Substance: CORTISONE\HYDROCORTISONE
     Dosage: 8 TABS FOR 7 DAYS THEN 7 TABLETS FOR 7 DAYS ETC. (TAPERING DOSE) UNTIL 1 TABLET PER DAY FOR 7 DAYS
     Route: 048
     Dates: start: 201808

REACTIONS (8)
  - Headache [Unknown]
  - Hypertension [Unknown]
  - Rash macular [Not Recovered/Not Resolved]
  - Product use issue [Unknown]
  - Muscular weakness [Not Recovered/Not Resolved]
  - Blood pressure increased [Unknown]
  - Alopecia [Unknown]
  - Condition aggravated [Recovering/Resolving]

NARRATIVE: CASE EVENT DATE: 20180712
